FAERS Safety Report 16465474 (Version 1)
Quarter: 2019Q2

REPORT INFORMATION
  Report Type: Spontaneous
  Country: US (occurrence: US)
  Receive Date: 20190621
  Receipt Date: 20190621
  Transmission Date: 20190711
  Serious: Yes (Other)
  Sender: FDA-Public Use
  Company Number: US-SHIRE-US201918432

PATIENT
  Age: 56 Year
  Sex: Male

DRUGS (2)
  1. VYVANSE [Suspect]
     Active Substance: LISDEXAMFETAMINE DIMESYLATE
     Indication: POST-TRAUMATIC STRESS DISORDER
     Dosage: 70 MILLIGRAM, 1X/DAY:QD
     Route: 048
     Dates: start: 201906
  2. VYVANSE [Suspect]
     Active Substance: LISDEXAMFETAMINE DIMESYLATE
     Indication: ANXIETY
     Dosage: 50 MILLIGRAM, 1X/DAY:QD
     Route: 048
     Dates: start: 201906

REACTIONS (9)
  - Syncope [Unknown]
  - Migraine [Unknown]
  - Stress [Unknown]
  - Incorrect product administration duration [Not Recovered/Not Resolved]
  - Palpitations [Unknown]
  - Confusional state [Unknown]
  - Off label use [Unknown]
  - Amnesia [Unknown]
  - Epistaxis [Unknown]

NARRATIVE: CASE EVENT DATE: 2019
